FAERS Safety Report 8911185 (Version 5)
Quarter: 2015Q2

REPORT INFORMATION
  Report Type: Spontaneous
  Country: US (occurrence: US)
  Receive Date: 20121116
  Receipt Date: 20150401
  Transmission Date: 20150821
  Serious: No
  Sender: FDA-Public Use
  Company Number: US-GLAXOSMITHKLINE-A0989750A

PATIENT
  Sex: Female
  Weight: 58.5 kg

DRUGS (6)
  1. VOTRIENT [Suspect]
     Active Substance: PAZOPANIB HYDROCHLORIDE
     Indication: RENAL CANCER
     Dosage: 400 MG, 1D
     Route: 048
  2. VOTRIENT [Suspect]
     Active Substance: PAZOPANIB HYDROCHLORIDE
     Dosage: 200 MG, QD
     Route: 048
  3. VOTRIENT [Suspect]
     Active Substance: PAZOPANIB HYDROCHLORIDE
     Dosage: UNK
  4. VOTRIENT [Suspect]
     Active Substance: PAZOPANIB HYDROCHLORIDE
     Dosage: UNK
  5. VOTRIENT [Suspect]
     Active Substance: PAZOPANIB HYDROCHLORIDE
     Indication: THYROID CANCER
     Dosage: UNK
  6. VOTRIENT [Suspect]
     Active Substance: PAZOPANIB HYDROCHLORIDE
     Dosage: UNK

REACTIONS (19)
  - Joint swelling [Unknown]
  - Adverse event [Unknown]
  - Off label use [Unknown]
  - Peripheral swelling [Unknown]
  - Rhinorrhoea [Unknown]
  - Sinus congestion [Unknown]
  - Constipation [Unknown]
  - Weight increased [Unknown]
  - Musculoskeletal disorder [Unknown]
  - Tooth fracture [Unknown]
  - Pain [Unknown]
  - Tooth loss [Not Recovered/Not Resolved]
  - Disease progression [Unknown]
  - Nasopharyngitis [Unknown]
  - Abdominal pain [Unknown]
  - Treatment failure [Unknown]
  - Headache [Unknown]
  - Abdominal tenderness [Unknown]
  - Gingival recession [Not Recovered/Not Resolved]

NARRATIVE: CASE EVENT DATE: 2013
